FAERS Safety Report 9186458 (Version 2)
Quarter: 2013Q1

REPORT INFORMATION
  Report Type: Report from Study
  Country: CN (occurrence: CN)
  Receive Date: 20130325
  Receipt Date: 20130329
  Transmission Date: 20140127
  Serious: Yes (Life-Threatening)
  Sender: FDA-Public Use
  Company Number: CN-CELGENEUS-035-CCAZA-13032666

PATIENT
  Age: 66 Year
  Sex: Male
  Weight: 80 kg

DRUGS (5)
  1. AZACITIDINE INJECTABLE [Suspect]
     Indication: MYELODYSPLASTIC SYNDROME
     Route: 058
     Dates: start: 20130304, end: 20130310
  2. TRIMETAZIDINE HYDROCHLORIDE [Concomitant]
     Indication: ANGINA PECTORIS
     Dosage: 60 MILLIGRAM
     Route: 048
     Dates: start: 20130316
  3. PIPERACILLIN/TAZOBACTAM [Concomitant]
     Indication: PROPHYLAXIS
     Dosage: 13.5 GRAM
     Route: 041
     Dates: start: 20130307
  4. COMPOUND GLYCYRRHIZIN [Concomitant]
     Indication: PROPHYLAXIS
     Dosage: 160 MILLIGRAM
     Route: 041
     Dates: start: 20130305
  5. ETHAMSYLATE [Concomitant]
     Indication: PROPHYLAXIS
     Dosage: 3 GRAM
     Route: 041
     Dates: start: 20130308

REACTIONS (1)
  - Anaemia [Recovered/Resolved]
